FAERS Safety Report 7246950-2 (Version None)
Quarter: 2011Q1

REPORT INFORMATION
  Report Type: 
  Country: None (occurrence: None)
  Receive Date: 20110127
  Receipt Date: 20110119
  Transmission Date: 20110831
  Serious: Yes (Other)
  Sender: FDA-Public Use
  Company Number: DE-PFIZER INC-2010146797

PATIENT
  Age: 17 Year
  Sex: Male
  Weight: 46 kg

DRUGS (2)
  1. REVATIO [Suspect]
     Indication: PULMONARY HYPERTENSION
     Dosage: 15 MG, 3X/DAY
     Route: 048
     Dates: start: 20090801
  2. REVATIO [Suspect]
     Indication: PULMONARY ARTERIAL PRESSURE

REACTIONS (3)
  - PULMONARY VALVE INCOMPETENCE [None]
  - PULMONARY ARTERIAL PRESSURE ABNORMAL [None]
  - TRICUSPID VALVE INCOMPETENCE [None]
